FAERS Safety Report 6610801-7 (Version None)
Quarter: 2010Q1

REPORT INFORMATION
  Report Type: 
  Country: None (occurrence: None)
  Receive Date: 20100302
  Receipt Date: 20100218
  Transmission Date: 20100710
  Serious: Yes (Other)
  Sender: FDA-Public Use
  Company Number: BR-PFIZER INC-2010018045

PATIENT
  Age: 73 Year
  Sex: Male
  Weight: 75 kg

DRUGS (5)
  1. LYRICA [Suspect]
     Indication: NEURALGIA
     Dosage: 150 MG, 2X/DAY
     Route: 048
     Dates: start: 20100206
  2. CARBAMAZEPINE [Concomitant]
     Indication: PAIN
     Dosage: 200 MG, 2X/DAY, EVERY 12 HOURS
  3. CAPTOPRIL [Concomitant]
     Indication: HYPERTENSION
     Dosage: 25 MG, 2X/DAY, EVERY 12 HOURS
     Route: 048
     Dates: start: 20030901
  4. NORTRIPTYLINE [Concomitant]
     Dosage: UNK
     Dates: start: 20100206
  5. DORFLEX [Concomitant]
     Indication: PAIN
     Dosage: UNK
     Dates: start: 20070101

REACTIONS (9)
  - ASTHMA [None]
  - CHEST DISCOMFORT [None]
  - CONSTIPATION [None]
  - DRUG INEFFECTIVE [None]
  - DYSPHONIA [None]
  - OEDEMA PERIPHERAL [None]
  - PAIN [None]
  - VISION BLURRED [None]
  - VISUAL IMPAIRMENT [None]
